FAERS Safety Report 10912812 (Version 1)
Quarter: 2015Q1

REPORT INFORMATION
  Report Type: Spontaneous
  Country: US (occurrence: None)
  Receive Date: 20150310
  Receipt Date: 20150310
  Transmission Date: 20150721
  Serious: Yes (Disabling)
  Sender: FDA-Public Use
  Company Number: None

PATIENT
  Age: 50 Year
  Sex: Female
  Weight: 113.4 kg

DRUGS (9)
  1. DIPHENHYDRAMINE [Concomitant]
     Active Substance: DIPHENHYDRAMINE
  2. KEPPRA [Concomitant]
     Active Substance: LEVETIRACETAM
  3. IBUPROFEN. [Concomitant]
     Active Substance: IBUPROFEN
  4. IBUPROFEN. [Concomitant]
     Active Substance: IBUPROFEN
  5. DIPHENHYDRAMINE [Concomitant]
     Active Substance: DIPHENHYDRAMINE
  6. CITALOPRAM [Concomitant]
     Active Substance: CITALOPRAM HYDROBROMIDE
  7. OXCARBAZEPINE/GENERIC FOR TRILEPTAL [Suspect]
     Active Substance: OXCARBAZEPINE
     Dosage: 2 PILLS BACK ON PERMANENT
     Route: 048
     Dates: start: 20141215, end: 20150123
  8. OXCARBAZEPINE. [Concomitant]
     Active Substance: OXCARBAZEPINE
  9. LEVETIRACETAM. [Concomitant]
     Active Substance: LEVETIRACETAM

REACTIONS (11)
  - Abdominal pain upper [None]
  - Insomnia [None]
  - Seizure [None]
  - Eye irritation [None]
  - Abnormal behaviour [None]
  - Anger [None]
  - Headache [None]
  - Pain [None]
  - Feeling abnormal [None]
  - Discomfort [None]
  - Urine output decreased [None]

NARRATIVE: CASE EVENT DATE: 20150123
